FAERS Safety Report 8293543-4 (Version None)
Quarter: 2012Q2

REPORT INFORMATION
  Report Type: 
  Country: None (occurrence: None)
  Receive Date: 20120418
  Receipt Date: 20120406
  Transmission Date: 20120825
  Serious: Yes (Hospitalization)
  Sender: FDA-Public Use
  Company Number: US-BIOGENIDEC-2012BI006008

PATIENT
  Age: 57 Year
  Sex: Female

DRUGS (1)
  1. TYSABRI [Suspect]
     Indication: MULTIPLE SCLEROSIS
     Route: 042
     Dates: start: 20091106, end: 20120202

REACTIONS (8)
  - WHITE BLOOD CELL COUNT INCREASED [None]
  - LIVER INJURY [None]
  - ABASIA [None]
  - CYST [None]
  - BACK PAIN [None]
  - INFECTION [None]
  - GASTRIC CYST [None]
  - SEPSIS [None]
